FAERS Safety Report 9517117 (Version 1)
Quarter: 2013Q3

REPORT INFORMATION
  Report Type: Spontaneous
  Country: US (occurrence: US)
  Receive Date: 20130911
  Receipt Date: 20130911
  Transmission Date: 20140515
  Serious: No
  Sender: FDA-Public Use
  Company Number: US-ASTRAZENECA-2013SE52591

PATIENT
  Age: 42 Year
  Sex: Female

DRUGS (7)
  1. SYMBICORT PMDI [Suspect]
     Indication: ASTHMA
     Route: 055
  2. CELEXA [Interacting]
     Indication: ANXIETY
     Route: 065
     Dates: end: 2013
  3. CELEXA [Interacting]
     Indication: DEPRESSION
     Route: 065
     Dates: end: 2013
  4. OMEPRAZOLE [Suspect]
     Dosage: PRN
     Route: 048
  5. CPAP [Concomitant]
  6. PROAIR [Concomitant]
     Indication: ASTHMA
  7. XYZAL [Concomitant]

REACTIONS (2)
  - Drug interaction [Recovered/Resolved]
  - Dyspnoea [Recovered/Resolved]
